FAERS Safety Report 8465004-0 (Version None)
Quarter: 2012Q2

REPORT INFORMATION
  Report Type: 
  Country: None (occurrence: None)
  Receive Date: 20120626
  Receipt Date: 20120622
  Transmission Date: 20120825
  Serious: Yes (Death, Other)
  Sender: FDA-Public Use
  Company Number: AR-ASTRAZENECA-2012SE42079

PATIENT
  Age: 56 Year
  Sex: Female

DRUGS (13)
  1. MEROPENEM [Suspect]
     Route: 042
  2. METRONIZADOL [Concomitant]
     Indication: SEPTIC EMBOLUS
     Route: 042
  3. PHENYTOIN [Concomitant]
     Indication: GRAND MAL CONVULSION
     Route: 042
  4. MIDAZOLAM [Concomitant]
     Indication: GENERALISED NON-CONVULSIVE EPILEPSY
     Route: 042
  5. PHENOBARBITAL TAB [Concomitant]
     Indication: GRAND MAL CONVULSION
     Route: 042
  6. METRONIDAZOLE [Concomitant]
     Indication: SEPTIC EMBOLUS
     Route: 042
  7. CETRIAFXON [Concomitant]
     Indication: SEPTIC EMBOLUS
     Route: 042
  8. VANCOMYCIN [Concomitant]
     Indication: SEPTIC EMBOLUS
     Route: 042
  9. LEVETIRACETAM [Concomitant]
     Indication: GRAND MAL CONVULSION
     Route: 042
  10. IMIPENEM [Concomitant]
     Indication: SEPTIC EMBOLUS
     Route: 042
  11. FLUCONAZO [Concomitant]
     Indication: SEPTIC EMBOLUS
     Route: 042
  12. VALPROIC ACID [Interacting]
     Indication: PYREXIA
  13. GENTAMICIN [Concomitant]
     Indication: SEPTIC EMBOLUS
     Route: 042

REACTIONS (4)
  - INHIBITORY DRUG INTERACTION [None]
  - MULTI-ORGAN FAILURE [None]
  - STATUS EPILEPTICUS [None]
  - SEPSIS [None]
